FAERS Safety Report 4960387-8 (Version None)
Quarter: 2006Q1

REPORT INFORMATION
  Report Type: 
  Country: None (occurrence: None)
  Receive Date: 20060329
  Receipt Date: 20060327
  Transmission Date: 20060701
  Serious: Yes (Hospitalization, Other)
  Sender: FDA-Public Use
  Company Number: THQ2005A00875

PATIENT
  Age: 66 Year
  Sex: 0

DRUGS (1)
  1. LEUPROLIDE ACETATE [Suspect]
     Dosage: 22.5 MG (22.5 MG, 1 IN 3 M)
     Dates: start: 20050616, end: 20050923

REACTIONS (3)
  - DIARRHOEA [None]
  - GUILLAIN-BARRE SYNDROME [None]
  - NEUROPATHY [None]
